FAERS Safety Report 19094105 (Version 1)
Quarter: 2021Q2

REPORT INFORMATION
  Report Type: Spontaneous
  Country: SG (occurrence: SG)
  Receive Date: 20210405
  Receipt Date: 20210405
  Transmission Date: 20210717
  Serious: Yes (Other)
  Sender: FDA-Public Use
  Company Number: SG-JAZZ-2021-SG-005987

PATIENT
  Sex: Male

DRUGS (2)
  1. ZEPZELCA [Suspect]
     Active Substance: LURBINECTEDIN
     Dosage: 2.5 MILLIGRAM/SQ. METER Q3W
     Route: 042
     Dates: end: 20210322
  2. ZEPZELCA [Suspect]
     Active Substance: LURBINECTEDIN
     Indication: SMALL CELL LUNG CANCER METASTATIC
     Dosage: 3.2 MILLIGRAM/SQ. METER Q3W
     Route: 042
     Dates: start: 20200930

REACTIONS (1)
  - Disease progression [Unknown]
